FAERS Safety Report 23348854 (Version 1)
Quarter: 2023Q4

REPORT INFORMATION
  Report Type: Spontaneous
  Country: US (occurrence: US)
  Receive Date: 20231229
  Receipt Date: 20231229
  Transmission Date: 20240110
  Serious: No
  Sender: FDA-Public Use
  Company Number: US-BRISTOL-MYERS SQUIBB COMPANY-2023-189194

PATIENT
  Age: 70 Year
  Sex: Female
  Weight: 80.74 kg

DRUGS (2)
  1. REBLOZYL [Suspect]
     Active Substance: LUSPATERCEPT-AAMT
     Indication: Acute myeloid leukaemia
     Dosage: DOSE WAS REPORTED AS 3
     Route: 058
     Dates: start: 2023
  2. VENCLEXTA [Concomitant]
     Active Substance: VENETOCLAX
     Indication: Product used for unknown indication
     Dosage: DAILY

REACTIONS (2)
  - Fatigue [Unknown]
  - Cough [Not Recovered/Not Resolved]
